FAERS Safety Report 18405831 (Version 2)
Quarter: 2020Q4

REPORT INFORMATION
  Report Type: Report from Study
  Country: US (occurrence: US)
  Receive Date: 20201020
  Receipt Date: 20201104
  Transmission Date: 20210114
  Serious: Yes (Hospitalization)
  Sender: FDA-Public Use
  Company Number: US-DOVA PHARMACEUTICALS INC.-DOV-000689

PATIENT
  Age: 76 Year
  Sex: Male

DRUGS (2)
  1. DOPTELET [Suspect]
     Active Substance: AVATROMBOPAG MALEATE
     Indication: PANCYTOPENIA
     Dosage: 20 MILLIGRAM
     Route: 048
     Dates: start: 20200918, end: 20200921
  2. DOPTELET [Suspect]
     Active Substance: AVATROMBOPAG MALEATE
     Indication: IMMUNE SYSTEM DISORDER
     Dosage: 20 MILLIGRAM, QD
     Route: 048
     Dates: start: 20201002

REACTIONS (3)
  - Haematemesis [Unknown]
  - Vomiting [Unknown]
  - Product use in unapproved indication [Unknown]

NARRATIVE: CASE EVENT DATE: 20201012
